FAERS Safety Report 4785576-7 (Version None)
Quarter: 2005Q4

REPORT INFORMATION
  Report Type: 
  Country: None (occurrence: None)
  Receive Date: 20051003
  Receipt Date: 20050803
  Transmission Date: 20060501
  Serious: Yes (Life-Threatening, Hospitalization, Other)
  Sender: FDA-Public Use
  Company Number: LU-GLAXOSMITHKLINE-B0389926A

PATIENT
  Age: 38 Year
  Sex: Male
  Weight: 66 kg

DRUGS (2)
  1. ZYBAN [Suspect]
     Indication: DRUG USE FOR UNKNOWN INDICATION
     Dosage: 100TAB SEE DOSAGE TEXT
     Route: 048
     Dates: start: 20050801, end: 20050801
  2. ALCOHOL [Concomitant]

REACTIONS (6)
  - COMA [None]
  - CONVULSION [None]
  - DEPRESSED LEVEL OF CONSCIOUSNESS [None]
  - EPILEPSY [None]
  - OVERDOSE [None]
  - SUICIDE ATTEMPT [None]
